FAERS Safety Report 17050795 (Version 1)
Quarter: 2019Q4

REPORT INFORMATION
  Report Type: Spontaneous
  Country: US (occurrence: US)
  Receive Date: 20191119
  Receipt Date: 20191119
  Transmission Date: 20200122
  Serious: No
  Sender: FDA-Public Use
  Company Number: US-CIPLA LTD.-2019US07119

PATIENT

DRUGS (3)
  1. LITHIUM. [Concomitant]
     Active Substance: LITHIUM
     Indication: AFFECTIVE DISORDER
     Dosage: 0.75 MILLIGRAM, BID
     Route: 065
  2. DICLOFENAC [Suspect]
     Active Substance: DICLOFENAC
     Indication: ARTHRITIS
     Dosage: UNK, QD ({ 2G ONCE A DAY), AT NIGHT
     Route: 061
     Dates: start: 20191021
  3. DICLOFENAC [Suspect]
     Active Substance: DICLOFENAC
     Dosage: UNK, QD ({ 2G ONCE A DAY), AT AFTERNOON
     Route: 061
     Dates: start: 20191022

REACTIONS (10)
  - Erythema [Recovered/Resolved]
  - Malaise [Recovered/Resolved]
  - Agitation [Recovered/Resolved]
  - Toxicity to various agents [Recovered/Resolved]
  - Nausea [Recovered/Resolved]
  - Product odour abnormal [Unknown]
  - Inappropriate schedule of product administration [Unknown]
  - Headache [Recovered/Resolved]
  - Feeling hot [Recovered/Resolved]
  - Application site irritation [Unknown]

NARRATIVE: CASE EVENT DATE: 20191022
